FAERS Safety Report 8598002-7 (Version None)
Quarter: 2012Q3

REPORT INFORMATION
  Report Type: 
  Country: None (occurrence: None)
  Receive Date: 20120816
  Receipt Date: 20120807
  Transmission Date: 20120928
  Serious: Yes (Other)
  Sender: FDA-Public Use
  Company Number: CA-BRISTOL-MYERS SQUIBB COMPANY-16674954

PATIENT
  Age: 26 Year
  Sex: Female

DRUGS (11)
  1. VITAMIN D [Concomitant]
  2. OXYCODONE HCL [Concomitant]
  3. PLAQUENIL [Concomitant]
  4. CALCIUM [Concomitant]
  5. PREDNISONE TAB [Concomitant]
  6. AMLODIPINE [Concomitant]
  7. OMEPRAZOLE [Concomitant]
  8. METHOTREXATE [Suspect]
     Dosage: INJ
  9. INDOCIN [Concomitant]
  10. ORENCIA [Suspect]
     Indication: RHEUMATOID ARTHRITIS
     Dosage: LAST INFUSION ON 11-MAY-2012,7AUG12 LOT # 2C80093 EXP DT SE2014 NO OF INF 6
     Route: 042
     Dates: start: 20120412
  11. FOLIC ACID [Concomitant]

REACTIONS (3)
  - ULCERATIVE KERATITIS [None]
  - BACK PAIN [None]
  - NAUSEA [None]
